FAERS Safety Report 4977521-6 (Version None)
Quarter: 2006Q2

REPORT INFORMATION
  Report Type: 
  Country: None (occurrence: None)
  Receive Date: 20060420
  Receipt Date: 20060202
  Transmission Date: 20061013
  Serious: Yes (Other)
  Sender: FDA-Public Use
  Company Number: 2006UW01878

PATIENT
  Age: 40 Year
  Sex: Female
  Weight: 109.1 kg

DRUGS (5)
  1. SEROQUEL [Suspect]
     Indication: BIPOLAR DISORDER
     Dosage: 100 MG HS AND 5 MG PM
     Route: 048
     Dates: start: 20040702, end: 20060223
  2. LAMICTAL [Concomitant]
     Indication: BIPOLAR DISORDER
     Route: 048
     Dates: start: 20051207
  3. TOPAMAX [Concomitant]
     Indication: HYPERTENSION
     Dates: start: 20040709
  4. ZOLOFT [Concomitant]
     Indication: DEPRESSION
     Dates: start: 20050702
  5. LEVOXYL [Concomitant]

REACTIONS (5)
  - BLOOD CHOLESTEROL INCREASED [None]
  - BLOOD TRIGLYCERIDES INCREASED [None]
  - CHOLELITHIASIS [None]
  - GALLBLADDER OPERATION [None]
  - PANCREATITIS [None]
